FAERS Safety Report 8208236-9 (Version None)
Quarter: 2012Q1

REPORT INFORMATION
  Report Type: 
  Country: None (occurrence: None)
  Receive Date: 20120314
  Receipt Date: 20120309
  Transmission Date: 20120608
  Serious: Yes (Other)
  Sender: FDA-Public Use
  Company Number: PHHY2012CN021428

PATIENT
  Sex: Male

DRUGS (1)
  1. MIACALCIN [Suspect]
     Indication: OSTEOPOROSIS
     Dosage: 50 IU, UNK
     Route: 030
     Dates: start: 20120301

REACTIONS (2)
  - CONVULSION [None]
  - DRUG HYPERSENSITIVITY [None]
